FAERS Safety Report 8581477 (Version 2)
Quarter: 2012Q4

REPORT INFORMATION
  Report Type: 
  Country: FR (occurrence: FR)
  Receive Date: 20120525
  Receipt Date: 20121218
  Transmission Date: 20130627
  Serious: Yes (Hospitalization, Other)
  Sender: FDA-Public Use
  Company Number: FR-ELI_LILLY_AND_COMPANY-FR201205004456

PATIENT
  Age: 29 Year
  Sex: Female

DRUGS (6)
  1. CYMBALTA [Suspect]
     Dosage: 60 mg, qd
     Route: 048
  2. TERCIAN [Concomitant]
  3. ABILIFY [Concomitant]
     Dosage: 10 mg, qd
     Route: 048
  4. NOCTAMIDE [Concomitant]
     Dosage: 1 DF, qd
     Route: 048
  5. LYSANXIA [Concomitant]
     Dosage: 4 DF, qd
     Route: 048
  6. CRESTOR [Concomitant]
     Route: 048

REACTIONS (3)
  - Stress cardiomyopathy [Recovered/Resolved]
  - Cholecystectomy [Recovered/Resolved]
  - Biliary sphincterotomy [Recovered/Resolved]
